FAERS Safety Report 17812232 (Version 1)
Quarter: 2020Q2

REPORT INFORMATION
  Report Type: Spontaneous
  Country: US (occurrence: US)
  Receive Date: 20200521
  Receipt Date: 20200521
  Transmission Date: 20200714
  Serious: Yes (Other)
  Sender: FDA-Public Use
  Company Number: None

PATIENT
  Age: 50 Year
  Sex: Female
  Weight: 77.85 kg

DRUGS (2)
  1. GLATIRAMER ACETATE. [Suspect]
     Active Substance: GLATIRAMER ACETATE
     Indication: MULTIPLE SCLEROSIS
     Dosage: ?          OTHER FREQUENCY:3 TIMES WEEKLY;?
     Route: 058
     Dates: start: 20190722, end: 20200421
  2. CYCLOBENZOPRINE [Concomitant]
     Active Substance: CYCLOBENZAPRINE
     Dates: start: 20171201

REACTIONS (4)
  - Urticaria [None]
  - Rash [None]
  - Anxiety [None]
  - Flushing [None]

NARRATIVE: CASE EVENT DATE: 20200421
